FAERS Safety Report 7580061-1 (Version None)
Quarter: 2011Q2

REPORT INFORMATION
  Report Type: 
  Country: None (occurrence: None)
  Receive Date: 20110629
  Receipt Date: 20101101
  Transmission Date: 20111010
  Serious: No
  Sender: FDA-Public Use
  Company Number: A0889973A

PATIENT
  Sex: Female

DRUGS (1)
  1. HYCAMTIN [Suspect]

REACTIONS (1)
  - PLATELET COUNT DECREASED [None]
